FAERS Safety Report 19132128 (Version 2)
Quarter: 2021Q2

REPORT INFORMATION
  Report Type: Spontaneous
  Country: US (occurrence: US)
  Receive Date: 20210413
  Receipt Date: 20210422
  Transmission Date: 20210717
  Serious: No
  Sender: FDA-Public Use
  Company Number: US-TEVA-2021-US-1898925

PATIENT
  Sex: Female

DRUGS (1)
  1. CLOTRIMAZOLE AND BETAMETHASON DIPROPIONATE ACTAVIS [Suspect]
     Active Substance: BETAMETHASONE DIPROPIONATE\CLOTRIMAZOLE
     Indication: ECZEMA
     Dosage: STRENGTH: 0.05 % / 1 %
     Route: 065

REACTIONS (5)
  - Eczema [Recovering/Resolving]
  - Application site discolouration [Recovering/Resolving]
  - Application site pain [Recovering/Resolving]
  - Drug ineffective [Unknown]
  - Burning sensation [Recovering/Resolving]
